FAERS Safety Report 16055017 (Version 1)
Quarter: 2019Q1

REPORT INFORMATION
  Report Type: Spontaneous
  Country: CN (occurrence: CN)
  Receive Date: 20190310
  Receipt Date: 20190310
  Transmission Date: 20190418
  Serious: Yes (Other)
  Sender: FDA-Public Use
  Company Number: CN-ROCHE-2277949

PATIENT
  Age: 54 Year
  Sex: Male

DRUGS (13)
  1. BEVACIZUMAB. [Suspect]
     Active Substance: BEVACIZUMAB
     Indication: METASTASES TO PLEURA
     Dosage: DAY 1
     Route: 065
     Dates: start: 20160711, end: 20190306
  2. PEMETREXED. [Concomitant]
     Active Substance: PEMETREXED
     Indication: METASTASES TO LYMPH NODES
     Dosage: DAY 1
     Route: 065
     Dates: start: 20160325, end: 20160617
  3. BEVACIZUMAB. [Suspect]
     Active Substance: BEVACIZUMAB
     Indication: METASTASES TO BONE
  4. BEVACIZUMAB. [Suspect]
     Active Substance: BEVACIZUMAB
     Indication: LUNG ADENOCARCINOMA
     Dosage: DAY 1
     Route: 065
     Dates: start: 20160125
  5. PEMETREXED. [Concomitant]
     Active Substance: PEMETREXED
     Indication: METASTASES TO BONE
  6. CISPLATIN. [Concomitant]
     Active Substance: CISPLATIN
     Indication: METASTASES TO BONE
  7. PAMIDRONATE DISODIUM. [Concomitant]
     Active Substance: PAMIDRONATE DISODIUM
     Indication: METASTASES TO BONE
     Route: 065
  8. CISPLATIN. [Concomitant]
     Active Substance: CISPLATIN
     Indication: LUNG ADENOCARCINOMA
     Dosage: TOTAL 140MG, 70MG(DAY 1), 70MG (DAY 2)
     Route: 065
     Dates: start: 20160125
  9. CISPLATIN. [Concomitant]
     Active Substance: CISPLATIN
     Indication: METASTASES TO LYMPH NODES
     Dosage: TOTAL 140MG, 70MG(DAY 1), 70MG (DAY 2)
     Route: 065
     Dates: start: 20160325, end: 20160617
  10. BEVACIZUMAB. [Suspect]
     Active Substance: BEVACIZUMAB
     Indication: METASTASES TO LYMPH NODES
     Dosage: DAY 1
     Route: 065
     Dates: start: 20160325, end: 20160617
  11. PEMETREXED. [Concomitant]
     Active Substance: PEMETREXED
     Indication: METASTASES TO PLEURA
     Dosage: DAY 1
     Route: 065
     Dates: start: 20160711, end: 20190306
  12. CISPLATIN. [Concomitant]
     Active Substance: CISPLATIN
     Indication: METASTASES TO PLEURA
  13. PEMETREXED. [Concomitant]
     Active Substance: PEMETREXED
     Indication: LUNG ADENOCARCINOMA
     Dosage: DAY 1
     Route: 065
     Dates: start: 20160125

REACTIONS (3)
  - Asthenia [Unknown]
  - Gastrointestinal disorder [Unknown]
  - Bone marrow failure [Unknown]
